FAERS Safety Report 16507995 (Version 1)
Quarter: 2019Q3

REPORT INFORMATION
  Report Type: Report from Study
  Country: CA (occurrence: CA)
  Receive Date: 20190702
  Receipt Date: 20190702
  Transmission Date: 20191004
  Serious: Yes (Other)
  Sender: FDA-Public Use
  Company Number: CA-ORION CORPORATION ORION PHARMA-TREX2019-2105

PATIENT
  Age: 63 Year

DRUGS (14)
  1. LEFLUNOMIDE. [Suspect]
     Active Substance: LEFLUNOMIDE
     Indication: PRODUCT USED FOR UNKNOWN INDICATION
     Route: 065
  2. ENBREL [Concomitant]
     Active Substance: ETANERCEPT
     Route: 065
  3. COLCHICINE. [Suspect]
     Active Substance: COLCHICINE
     Indication: PRODUCT USED FOR UNKNOWN INDICATION
     Route: 065
  4. COSENTYX [Suspect]
     Active Substance: SECUKINUMAB
     Indication: PSORIASIS
     Route: 058
  5. METFORMIN [Suspect]
     Active Substance: METFORMIN HYDROCHLORIDE
     Indication: PRODUCT USED FOR UNKNOWN INDICATION
     Route: 065
  6. HUMIRA [Concomitant]
     Active Substance: ADALIMUMAB
     Route: 065
  7. COSENTYX [Suspect]
     Active Substance: SECUKINUMAB
     Dosage: EVERY 3 WEEK:FREQUENCY
     Route: 058
  8. NAPROXEN. [Concomitant]
     Active Substance: NAPROXEN
     Route: 065
  9. METHOTREXATE (TRADE NAME UNKNOWN) [Suspect]
     Active Substance: METHOTREXATE
     Indication: PRODUCT USED FOR UNKNOWN INDICATION
     Route: 065
  10. COSENTYX [Suspect]
     Active Substance: SECUKINUMAB
     Route: 058
  11. CIMIZA [Concomitant]
     Route: 065
  12. COSENTYX [Suspect]
     Active Substance: SECUKINUMAB
     Indication: PSORIATIC ARTHROPATHY
     Route: 058
  13. COSENTYX [Suspect]
     Active Substance: SECUKINUMAB
     Route: 065
  14. PREDNISONE. [Concomitant]
     Active Substance: PREDNISONE
     Route: 065

REACTIONS (23)
  - Malaise [Not Recovered/Not Resolved]
  - Cystitis [Not Recovered/Not Resolved]
  - Joint swelling [Not Recovered/Not Resolved]
  - Peripheral swelling [Not Recovered/Not Resolved]
  - Drug ineffective [Not Recovered/Not Resolved]
  - Incorrect dose administered [Not Recovered/Not Resolved]
  - Cough [Not Recovered/Not Resolved]
  - Influenza [Not Recovered/Not Resolved]
  - Pyrexia [Not Recovered/Not Resolved]
  - Musculoskeletal pain [Not Recovered/Not Resolved]
  - Psoriasis [Not Recovered/Not Resolved]
  - Swelling [Not Recovered/Not Resolved]
  - Product prescribing error [Not Recovered/Not Resolved]
  - Arthralgia [Not Recovered/Not Resolved]
  - Nasopharyngitis [Not Recovered/Not Resolved]
  - Lower respiratory tract infection [Not Recovered/Not Resolved]
  - Urinary tract infection [Not Recovered/Not Resolved]
  - Back pain [Not Recovered/Not Resolved]
  - Fatigue [Not Recovered/Not Resolved]
  - Motor dysfunction [Not Recovered/Not Resolved]
  - Oropharyngeal pain [Not Recovered/Not Resolved]
  - Pain [Not Recovered/Not Resolved]
  - Pain in extremity [Not Recovered/Not Resolved]
